FAERS Safety Report 4396312-0 (Version None)
Quarter: 2004Q3

REPORT INFORMATION
  Report Type: 
  Country: None (occurrence: None)
  Receive Date: 20040713
  Receipt Date: 20040705
  Transmission Date: 20050211
  Serious: Yes (Hospitalization)
  Sender: FDA-Public Use
  Company Number: FR-GLAXOSMITHKLINE-B0337717A

PATIENT
  Age: 22 Year
  Sex: Female
  Weight: 60 kg

DRUGS (2)
  1. VALACYCLOVIR HCL [Suspect]
     Indication: HERPES VIRUS INFECTION
     Dosage: 1G PER DAY
     Route: 048
     Dates: start: 20040216, end: 20040222
  2. ZITHROMAX [Suspect]
     Route: 048
     Dates: start: 20040211, end: 20040214

REACTIONS (9)
  - ABNORMAL SENSATION IN EYE [None]
  - C-REACTIVE PROTEIN INCREASED [None]
  - HERPETIC GINGIVOSTOMATITIS [None]
  - LYMPHOPENIA [None]
  - MUCOSAL EROSION [None]
  - RASH PAPULAR [None]
  - STEVENS-JOHNSON SYNDROME [None]
  - SYMBLEPHARON [None]
  - VISION BLURRED [None]
